FAERS Safety Report 13014710 (Version 5)
Quarter: 2018Q3

REPORT INFORMATION
  Report Type: Report from Study
  Country: US (occurrence: US)
  Receive Date: 20161209
  Receipt Date: 20180717
  Transmission Date: 20181010
  Serious: Yes (Hospitalization)
  Sender: FDA-Public Use
  Company Number: US-ACTELION-A-US2016-146535

PATIENT
  Age: 69 Year
  Sex: Female
  Weight: 102.4 kg

DRUGS (3)
  1. TRACLEER [Suspect]
     Active Substance: BOSENTAN
     Indication: PULMONARY ARTERIAL HYPERTENSION
     Dosage: 125 MG, BID
     Route: 048
     Dates: start: 20150224
  2. ADEMPAS [Concomitant]
     Active Substance: RIOCIGUAT
  3. AMLODIPINE [Concomitant]
     Active Substance: AMLODIPINE BESYLATE

REACTIONS (16)
  - Pneumonia [Unknown]
  - Loss of consciousness [Unknown]
  - Atrial fibrillation [Unknown]
  - Fatigue [Unknown]
  - Cardiac failure [Unknown]
  - Hypotension [Unknown]
  - Heart rate decreased [Unknown]
  - Dizziness [Unknown]
  - Urine output decreased [Unknown]
  - Cold sweat [Unknown]
  - Pulmonary oedema [Unknown]
  - Dyspepsia [Unknown]
  - Respiratory distress [Unknown]
  - Blood glucose increased [Unknown]
  - Unresponsive to stimuli [Unknown]
  - Syncope [Unknown]

NARRATIVE: CASE EVENT DATE: 20180521
